FAERS Safety Report 5470142-0 (Version None)
Quarter: 2007Q3

REPORT INFORMATION
  Report Type: 
  Country: None (occurrence: None)
  Receive Date: 20070924
  Receipt Date: 20070914
  Transmission Date: 20080115
  Serious: Yes (Other)
  Sender: FDA-Public Use
  Company Number: SP01588

PATIENT
  Age: 54 Year
  Sex: Female
  Weight: 77.5651 kg

DRUGS (1)
  1. OSMOPREP [Suspect]
     Indication: COLONOSCOPY
     Dosage: 6 GM (6 GM, 1 IN 1 D), ORAL
     Route: 048
     Dates: start: 20070905, end: 20070905

REACTIONS (1)
  - HYPERSENSITIVITY [None]
